FAERS Safety Report 15968608 (Version 1)
Quarter: 2019Q1

REPORT INFORMATION
  Report Type: Spontaneous
  Country: AU (occurrence: AU)
  Receive Date: 20190215
  Receipt Date: 20190215
  Transmission Date: 20190418
  Serious: Yes (Death, Life-Threatening)
  Sender: FDA-Public Use
  Company Number: AU-PFIZER INC-2019066949

PATIENT
  Age: 14 Year
  Sex: Male
  Weight: 57.3 kg

DRUGS (15)
  1. GANCICLOVIR. [Suspect]
     Active Substance: GANCICLOVIR
     Indication: CYTOMEGALOVIRUS INFECTION
     Dosage: 300 MG, DAILY
     Route: 042
  2. FOSCARNET [Suspect]
     Active Substance: FOSCARNET
     Indication: CYTOMEGALOVIRUS INFECTION
     Dosage: 3400 MG, DAILY
     Route: 042
  3. VORICONAZOLE. [Suspect]
     Active Substance: VORICONAZOLE
     Indication: SINUSITIS
  4. BRINCIDOFOVIR [Suspect]
     Active Substance: BRINCIDOFOVIR
     Indication: ADENOVIRUS INFECTION
     Dosage: 70 MG, 2X/WEEK (BIW)
     Route: 048
     Dates: start: 20180518, end: 20180809
  5. PREDNISOLONE. [Suspect]
     Active Substance: PREDNISOLONE
     Indication: ADRENAL INSUFFICIENCY
     Dosage: 20 MG, 2X/DAY(BID)
     Route: 048
  6. CIDOFOVIR. [Concomitant]
     Active Substance: CIDOFOVIR
     Dosage: 1 MG/KG, SINGLE
  7. GANCICLOVIR. [Suspect]
     Active Substance: GANCICLOVIR
     Dosage: 300 MG, 2X/DAY
     Route: 042
  8. BACTRIM [Suspect]
     Active Substance: SULFAMETHOXAZOLE\TRIMETHOPRIM
     Indication: ANTIFUNGAL PROPHYLAXIS
     Dosage: 160 MG, DAILY
     Route: 048
  9. VORICONAZOLE. [Suspect]
     Active Substance: VORICONAZOLE
     Indication: SCEDOSPORIUM INFECTION
     Dosage: 400 MG, 1X/DAY (QD)
     Route: 048
  10. CYCLOSPORINE. [Suspect]
     Active Substance: CYCLOSPORINE
     Indication: GRAFT VERSUS HOST DISEASE
     Dosage: 50 MG, DAILY
     Route: 042
  11. FOSCARNET [Suspect]
     Active Substance: FOSCARNET
     Dosage: 3400 MG, 2X/DAY (BID)
     Route: 042
  12. AMBISOME [Suspect]
     Active Substance: AMPHOTERICIN B
     Indication: SCEDOSPORIUM INFECTION
     Dosage: 170 MG, 1X/DAY (QD)
     Route: 042
  13. CIDOFOVIR. [Concomitant]
     Active Substance: CIDOFOVIR
     Dosage: 3 MG/KG, WEEKLY
     Route: 042
  14. CYCLOSPORINE. [Suspect]
     Active Substance: CYCLOSPORINE
     Dosage: 50 MG, 2X/DAY
     Route: 042
  15. BACTRIM [Suspect]
     Active Substance: SULFAMETHOXAZOLE\TRIMETHOPRIM
     Indication: PROPHYLAXIS
     Dosage: 160 MG, 2X/DAY (BID)
     Route: 048

REACTIONS (4)
  - Scedosporium infection [Fatal]
  - Pancytopenia [Fatal]
  - Product use in unapproved indication [Unknown]
  - Hepatic failure [Not Recovered/Not Resolved]

NARRATIVE: CASE EVENT DATE: 20180306
